FAERS Safety Report 6376295-4 (Version None)
Quarter: 2009Q3

REPORT INFORMATION
  Report Type: 
  Country: None (occurrence: None)
  Receive Date: 20090923
  Receipt Date: 20090923
  Transmission Date: 20100115
  Serious: Yes (Hospitalization)
  Sender: FDA-Public Use
  Company Number: None

PATIENT
  Age: 38 Year
  Sex: Female
  Weight: 61 kg

DRUGS (8)
  1. AMLODIPINE [Suspect]
     Indication: HYPERTENSION
     Dosage: 5MG PO BID
     Route: 048
     Dates: start: 20090429, end: 20090506
  2. AMLODIPINE [Concomitant]
  3. DOXYCYCLINE [Concomitant]
  4. THEOPHYLLINE [Concomitant]
  5. ALBUTEROL [Concomitant]
  6. IBUPROFEN [Concomitant]
  7. OXYCODINE/APAP [Concomitant]
  8. SULFAMETHOXAZOLE AND TRIMETHOPRIM [Concomitant]

REACTIONS (4)
  - BLOOD PRESSURE INCREASED [None]
  - DIZZINESS [None]
  - FALL [None]
  - SYNCOPE [None]
